FAERS Safety Report 16095321 (Version 1)
Quarter: 2019Q2

REPORT INFORMATION
  Report Type: Spontaneous
  Country: US (occurrence: US)
  Receive Date: 20190320
  Receipt Date: 20190320
  Transmission Date: 20190711
  Serious: Yes (Hospitalization, Other)
  Sender: FDA-Public Use
  Company Number: None

PATIENT
  Sex: Male

DRUGS (5)
  1. TALTZ [Suspect]
     Active Substance: IXEKIZUMAB
     Indication: PSORIASIS
     Dosage: ?          OTHER FREQUENCY:EVERY 4 WEEKS;?
     Route: 058
  2. COSENTYX [Suspect]
     Active Substance: SECUKINUMAB
  3. HYDROXYUREA 500MG CAPSULES [Concomitant]
     Dates: start: 20190304, end: 20190320
  4. OMEPRAZOLE 40MG CAPS [Concomitant]
     Dates: start: 20190215
  5. CLOBETASOL OINTMENT 0.05% [Concomitant]
     Dates: start: 20170719

REACTIONS (1)
  - Leukaemia [None]
